FAERS Safety Report 9237351 (Version 1)
Quarter: 2013Q2

REPORT INFORMATION
  Report Type: Spontaneous
  Country: US (occurrence: US)
  Receive Date: 20130417
  Receipt Date: 20130417
  Transmission Date: 20140414
  Serious: Yes (Other)
  Sender: FDA-Public Use
  Company Number: US-BAYER-2013-048536

PATIENT
  Sex: 0

DRUGS (1)
  1. BETASERON [Suspect]

REACTIONS (2)
  - Unevaluable event [None]
  - Adverse drug reaction [None]
